FAERS Safety Report 17557332 (Version 2)
Quarter: 2020Q1

REPORT INFORMATION
  Report Type: Spontaneous
  Country: BR (occurrence: BR)
  Receive Date: 20200318
  Receipt Date: 20200323
  Transmission Date: 20200409
  Serious: Yes (Other)
  Sender: FDA-Public Use
  Company Number: BR-DSJP-DSE-2020-109083AA

PATIENT

DRUGS (2)
  1. PURAN [Concomitant]
     Active Substance: LEVOTHYROXINE SODIUM
     Indication: PRODUCT USED FOR UNKNOWN INDICATION
     Dosage: 112 NG
     Route: 065
  2. BENICAR ANLO 40/5 [Suspect]
     Active Substance: AMLODIPINE BESYLATE\OLMESARTAN MEDOXOMIL
     Indication: HYPERTENSION
     Dosage: 40/5 MG, QD
     Route: 048
     Dates: start: 2019, end: 20200227

REACTIONS (21)
  - Myalgia [Recovered/Resolved]
  - Nocturia [Recovered/Resolved]
  - Somnolence [Recovered/Resolved]
  - Blood glucose increased [Not Recovered/Not Resolved]
  - Prostate examination abnormal [Unknown]
  - Intraocular haematoma [Recovered/Resolved]
  - Nerve injury [Recovered/Resolved]
  - Hyperglycaemia [Not Recovered/Not Resolved]
  - Arthralgia [Recovered/Resolved]
  - Loss of personal independence in daily activities [Recovered/Resolved]
  - Temperature intolerance [Recovered/Resolved]
  - Eye haemorrhage [Recovered/Resolved]
  - Pain [Recovered/Resolved]
  - Tendonitis [Recovered/Resolved]
  - Muscle spasms [Recovered/Resolved]
  - Blood prolactin increased [Unknown]
  - Blood testosterone decreased [Unknown]
  - Erectile dysfunction [Recovering/Resolving]
  - Sleep disorder [Recovered/Resolved]
  - Fatigue [Recovered/Resolved]
  - Breast enlargement [Recovered/Resolved]
